FAERS Safety Report 25431046 (Version 2)
Quarter: 2025Q3

REPORT INFORMATION
  Report Type: Report from Study
  Country: US (occurrence: US)
  Receive Date: 20250612
  Receipt Date: 20250701
  Transmission Date: 20251020
  Serious: Yes (Disabling, Other)
  Sender: ABBVIE
  Company Number: US-ABBVIE-6319061

PATIENT
  Age: 24 Year
  Sex: Female

DRUGS (1)
  1. SKYRIZI [Suspect]
     Active Substance: RISANKIZUMAB-RZAA
     Indication: Colitis ulcerative
     Route: 058
     Dates: start: 20250115

REACTIONS (12)
  - Disability [Unknown]
  - Injection site pain [Unknown]
  - Polyp [Recovered/Resolved]
  - Drug ineffective [Unknown]
  - Contusion [Unknown]
  - Chest discomfort [Recovered/Resolved]
  - Haemorrhoids [Recovered/Resolved]
  - Colitis [Unknown]
  - Dehydration [Unknown]
  - Gait inability [Unknown]
  - Anaemia [Not Recovered/Not Resolved]
  - Vitamin B12 decreased [Not Recovered/Not Resolved]

NARRATIVE: CASE EVENT DATE: 20250101
